FAERS Safety Report 7110743-7 (Version None)
Quarter: 2010Q4

REPORT INFORMATION
  Report Type: 
  Country: None (occurrence: None)
  Receive Date: 20101118
  Receipt Date: 20101111
  Transmission Date: 20110411
  Serious: Yes (Hospitalization)
  Sender: FDA-Public Use
  Company Number: B0646048A

PATIENT
  Sex: Male
  Weight: 86 kg

DRUGS (12)
  1. ZOFRAN [Suspect]
     Indication: PRODUCT USED FOR UNKNOWN INDICATION
     Route: 042
     Dates: start: 20100218, end: 20100303
  2. IRINOTECAN HYDROCHLORIDE [Suspect]
     Indication: COLORECTAL CANCER METASTATIC
     Dosage: 180MGM2 EVERY TWO WEEKS
     Route: 042
     Dates: start: 20100218
  3. FLUOROURACIL [Suspect]
     Indication: COLORECTAL CANCER METASTATIC
     Dosage: 400MGM2 EVERY TWO WEEKS
     Route: 040
     Dates: start: 20100218
  4. BEVACIZUMAB [Suspect]
     Indication: COLORECTAL CANCER METASTATIC
     Dosage: 5MGK EVERY TWO WEEKS
     Route: 042
     Dates: start: 20100218
  5. FOLINIC ACID [Suspect]
     Indication: COLORECTAL CANCER METASTATIC
     Dosage: 400MGM2 EVERY TWO WEEKS
     Route: 042
     Dates: start: 20100218
  6. FENISTIL [Concomitant]
     Dosage: 4MG EVERY TWO WEEKS
     Route: 042
     Dates: start: 20100218
  7. FORTECORTIN [Concomitant]
     Dosage: 8MG EVERY TWO WEEKS
     Route: 042
     Dates: start: 20100218
  8. ATROPIN [Concomitant]
     Dosage: .25MG EVERY TWO WEEKS
     Route: 058
     Dates: start: 20100218
  9. METAMIZOLE SODIUM [Concomitant]
     Dosage: 20DROP THREE TIMES PER DAY
     Route: 048
     Dates: start: 20100218
  10. TRAMADOL HCL [Concomitant]
     Dosage: 20DROP PER DAY
     Route: 048
     Dates: start: 20100101
  11. BROMAZEPAM [Concomitant]
     Dosage: 1TAB PER DAY
     Route: 048
     Dates: start: 20100218
  12. NYSTATIN [Concomitant]
     Route: 048
     Dates: start: 20100225

REACTIONS (2)
  - ABDOMINAL DISCOMFORT [None]
  - CONSTIPATION [None]
